FAERS Safety Report 8179580-9 (Version None)
Quarter: 2012Q1

REPORT INFORMATION
  Report Type: 
  Country: None (occurrence: None)
  Receive Date: 20120229
  Receipt Date: 20120217
  Transmission Date: 20120608
  Serious: Yes (Hospitalization, Other)
  Sender: FDA-Public Use
  Company Number: 2012SP009363

PATIENT
  Sex: Female

DRUGS (3)
  1. PEG-INTRON [Suspect]
     Indication: HEPATITIS C
     Dosage: UNK
     Dates: start: 20111125
  2. RIBAVIRIN [Suspect]
     Indication: HEPATITIS C
     Dosage: UNK
     Dates: start: 20111125
  3. VICTRELIS [Suspect]
     Indication: HEPATITIS C
     Dosage: UNK
     Dates: start: 20111224

REACTIONS (11)
  - BLOOD DISORDER [None]
  - THINKING ABNORMAL [None]
  - FATIGUE [None]
  - FALL [None]
  - LOSS OF CONSCIOUSNESS [None]
  - BLOOD SODIUM DECREASED [None]
  - ABASIA [None]
  - NASOPHARYNGITIS [None]
  - ASTHENIA [None]
  - MALAISE [None]
  - INSOMNIA [None]
